FAERS Safety Report 7336241-3 (Version None)
Quarter: 2011Q1

REPORT INFORMATION
  Report Type: 
  Country: None (occurrence: None)
  Receive Date: 20110307
  Receipt Date: 20110209
  Transmission Date: 20110831
  Serious: No
  Sender: FDA-Public Use
  Company Number: US-B.I. PHARMACEUTICALS,INC./RIDGEFIELD-2011-BP-05357BP

PATIENT
  Sex: Female

DRUGS (8)
  1. LEVOTHROID [Concomitant]
     Dosage: 88 MG
  2. PRADAXA [Suspect]
     Dosage: 300 MG
     Route: 048
     Dates: start: 20110126
  3. AMLODIPINE [Concomitant]
     Dosage: 5 MG
  4. LOSARTAN POTASSIUM [Concomitant]
  5. CELEBREX [Concomitant]
     Dosage: 200 MG
  6. SERTRALINE [Concomitant]
     Dosage: 100 MG
  7. PRAVASTATIN [Concomitant]
     Dosage: 40 MG
  8. BISOPROLFUM [Concomitant]
     Dosage: 10 MG

REACTIONS (1)
  - FATIGUE [None]
